FAERS Safety Report 9999499 (Version 2)
Quarter: 2014Q1

REPORT INFORMATION
  Report Type: Spontaneous
  Country: US (occurrence: US)
  Receive Date: 20140312
  Receipt Date: 20140312
  Transmission Date: 20141002
  Serious: No
  Sender: FDA-Public Use
  Company Number: US-TEVA-425916USA

PATIENT
  Sex: Male

DRUGS (1)
  1. AMOXICILLIN [Suspect]

REACTIONS (2)
  - Drug hypersensitivity [Recovered/Resolved]
  - Rash morbilliform [Unknown]
